FAERS Safety Report 8539021-6 (Version None)
Quarter: 2012Q3

REPORT INFORMATION
  Report Type: 
  Country: None (occurrence: None)
  Receive Date: 20120726
  Receipt Date: 20120723
  Transmission Date: 20120928
  Serious: Yes (Death, Other)
  Sender: FDA-Public Use
  Company Number: PHHY2011JP103837

PATIENT
  Sex: Female
  Weight: 76 kg

DRUGS (9)
  1. AREDIA [Suspect]
     Indication: METASTASES TO BONE
     Route: 041
     Dates: start: 20060201, end: 20060501
  2. PACLITAXEL [Concomitant]
  3. TAMOXIFEN CITRATE [Concomitant]
     Indication: BREAST CANCER
     Dosage: UNK UKN, UNK
     Route: 048
  4. ZOMETA [Suspect]
     Indication: METASTASES TO BONE
     Dosage: 4 MG, UNK
     Route: 041
     Dates: start: 20060501, end: 20080501
  5. MEDROXYPROGESTERONE ACETATE [Concomitant]
     Indication: BREAST CANCER
     Dosage: UNK UKN, UNK
     Route: 048
     Dates: start: 20080602, end: 20090727
  6. FEMARA [Concomitant]
     Indication: BREAST CANCER
     Dosage: UNK UKN, UNK
     Route: 048
  7. MEDROXYPROGESTERONE ACETATE [Concomitant]
  8. CAPECITABINE [Concomitant]
  9. FARESTON [Concomitant]
     Indication: BREAST CANCER
     Dosage: UNK UKN, UNK
     Route: 048
     Dates: start: 20090727

REACTIONS (21)
  - PLEURAL EFFUSION [None]
  - NEOPLASM MALIGNANT [None]
  - NEOPLASM PROGRESSION [None]
  - GINGIVAL INFECTION [None]
  - OSTEONECROSIS OF JAW [None]
  - PERIODONTAL INFECTION [None]
  - OSTEOMYELITIS [None]
  - BONE FISTULA [None]
  - RESPIRATORY DISORDER [None]
  - GENERAL PHYSICAL HEALTH DETERIORATION [None]
  - BONE LESION [None]
  - PRIMARY SEQUESTRUM [None]
  - BONE NEOPLASM [None]
  - BONE SWELLING [None]
  - BONE PAIN [None]
  - EXPOSED BONE IN JAW [None]
  - GINGIVITIS [None]
  - METASTASES TO BONE [None]
  - PNEUMONIA STAPHYLOCOCCAL [None]
  - MEDIASTINAL SHIFT [None]
  - METASTASES TO CHEST WALL [None]
